FAERS Safety Report 13287320 (Version 1)
Quarter: 2017Q1

REPORT INFORMATION
  Report Type: Spontaneous
  Country: FR (occurrence: FR)
  Receive Date: 20170302
  Receipt Date: 20170302
  Transmission Date: 20170428
  Serious: Yes (Hospitalization, Other)
  Sender: FDA-Public Use
  Company Number: FR-ASTRAZENECA-2017SE20633

PATIENT
  Age: 920 Month
  Sex: Male

DRUGS (9)
  1. KARDEGIC [Suspect]
     Active Substance: ASPIRIN LYSINE
     Indication: INFARCTION
     Route: 048
     Dates: start: 2004
  2. LASILIX [Suspect]
     Active Substance: FUROSEMIDE
     Route: 048
  3. INEXIUM [Suspect]
     Active Substance: ESOMEPRAZOLE
     Indication: ULCER
     Route: 048
     Dates: start: 2006
  4. LYRICA [Suspect]
     Active Substance: PREGABALIN
     Indication: NEURALGIA
     Route: 048
     Dates: start: 201108
  5. BIPRETERAX [Suspect]
     Active Substance: INDAPAMIDE\PERINDOPRIL
     Indication: HYPERTENSION
     Dosage: 5 MG/1.25 MG ONE DOSING FORM DAILY
     Route: 048
     Dates: start: 201104
  6. GLIVEC [Suspect]
     Active Substance: IMATINIB MESYLATE
     Indication: CHRONIC MYELOID LEUKAEMIA
     Route: 048
     Dates: start: 20040401
  7. PYRIDOXINE CHLORHYDRATE [Concomitant]
     Active Substance: PYRIDOXINE HYDROCHLORIDE
  8. MAGNE B6 [Concomitant]
     Active Substance: MAGNESIUM\PYRIDOXINE
  9. STABLON [Suspect]
     Active Substance: TIANEPTINE
     Route: 048
     Dates: start: 201403

REACTIONS (3)
  - Bladder cancer [Recovered/Resolved]
  - Small cell lung cancer [Not Recovered/Not Resolved]
  - Lymphangiosis carcinomatosa [Unknown]

NARRATIVE: CASE EVENT DATE: 201510
